FAERS Safety Report 5455199-5 (Version None)
Quarter: 2007Q3

REPORT INFORMATION
  Report Type: 
  Country: None (occurrence: None)
  Receive Date: 20070918
  Receipt Date: 20070906
  Transmission Date: 20080115
  Serious: Yes (Hospitalization)
  Sender: FDA-Public Use
  Company Number: JP-JNJFOC-20060900094

PATIENT
  Sex: Female

DRUGS (14)
  1. MICONAZOLE [Suspect]
     Route: 048
  2. MICONAZOLE [Suspect]
     Indication: ORAL CANDIDIASIS
     Route: 048
  3. WARFARIN POTASSIUM [Interacting]
     Route: 048
  4. WARFARIN POTASSIUM [Interacting]
     Route: 048
  5. WARFARIN POTASSIUM [Interacting]
     Route: 048
  6. WARFARIN POTASSIUM [Interacting]
     Route: 048
  7. WARFARIN POTASSIUM [Interacting]
     Route: 048
  8. WARFARIN POTASSIUM [Interacting]
     Route: 048
  9. WARFARIN POTASSIUM [Interacting]
     Route: 048
  10. WARFARIN POTASSIUM [Interacting]
     Route: 048
  11. WARFARIN POTASSIUM [Interacting]
     Route: 048
  12. WARFARIN POTASSIUM [Interacting]
     Indication: DRUG USE FOR UNKNOWN INDICATION
     Route: 048
  13. ALFACALCIDOL [Concomitant]
     Route: 048
  14. PILSICAINIDE HYDROCHLORIDE [Concomitant]
     Indication: ATRIAL FIBRILLATION
     Route: 048

REACTIONS (4)
  - DRUG INTERACTION [None]
  - HAEMORRHAGE SUBCUTANEOUS [None]
  - INTERNATIONAL NORMALISED RATIO INCREASED [None]
  - PROTHROMBIN TIME ABNORMAL [None]
